FAERS Safety Report 15989906 (Version 1)
Quarter: 2019Q1

REPORT INFORMATION
  Report Type: Other
  Country: IT (occurrence: IT)
  Receive Date: 20190221
  Receipt Date: 20190221
  Transmission Date: 20190418
  Serious: Yes (Hospitalization, Other)
  Sender: FDA-Public Use
  Company Number: IT-APOTEX-2019AP008376

PATIENT
  Age: 18 Year
  Sex: Male

DRUGS (3)
  1. BRUFEN                             /00109201/ [Suspect]
     Active Substance: IBUPROFEN
     Indication: SUBSTANCE ABUSE
     Dosage: IN TOTAL
     Route: 048
     Dates: start: 20181010, end: 20181010
  2. PAROXETINE. [Suspect]
     Active Substance: PAROXETINE
     Indication: SUBSTANCE ABUSE
     Dosage: IN TOTAL
     Route: 065
     Dates: start: 20181010, end: 20181010
  3. SERENASE                           /00027401/ [Suspect]
     Active Substance: HALOPERIDOL
     Indication: SUBSTANCE ABUSE
     Dosage: IN TOTAL
     Route: 048
     Dates: start: 20181010, end: 20181010

REACTIONS (3)
  - Malaise [Recovered/Resolved]
  - Substance abuse [Recovered/Resolved]
  - Somnolence [Recovered/Resolved]

NARRATIVE: CASE EVENT DATE: 20181010
